FAERS Safety Report 25656345 (Version 1)
Quarter: 2025Q3

REPORT INFORMATION
  Report Type: Spontaneous
  Country: GB (occurrence: GB)
  Receive Date: 20250807
  Receipt Date: 20250807
  Transmission Date: 20251020
  Serious: Yes (Hospitalization, Other)
  Sender: NOVA LABORATORIES LIMITED
  Company Number: GB-Nova Laboratories Limited-2182063

PATIENT
  Age: 88 Year
  Sex: Female

DRUGS (9)
  1. XROMI [Suspect]
     Active Substance: HYDROXYUREA
     Indication: Product used for unknown indication
  2. LACTULOSE [Concomitant]
     Active Substance: LACTULOSE
  3. NUALTRA ALTRASHOT [Concomitant]
  4. ASPIRIN [Concomitant]
     Active Substance: ASPIRIN
  5. CHOLECALCIFEROL [Concomitant]
     Active Substance: CHOLECALCIFEROL
  6. HYPROMELLOSES [Concomitant]
     Active Substance: HYPROMELLOSES
  7. ALFACALCIDOL [Concomitant]
     Active Substance: ALFACALCIDOL
  8. ALTRAPLEN COMPACT [Concomitant]
  9. ACETAMINOPHEN [Concomitant]
     Active Substance: ACETAMINOPHEN

REACTIONS (1)
  - Hyponatraemia [Recovered/Resolved]
